FAERS Safety Report 9057379 (Version 1)
Quarter: 2013Q1

REPORT INFORMATION
  Report Type: Spontaneous
  Country: GB (occurrence: GB)
  Receive Date: 20130204
  Receipt Date: 20130204
  Transmission Date: 20140127
  Serious: Yes (Disabling)
  Sender: FDA-Public Use
  Company Number: PHHY2013GB008683

PATIENT
  Age: 91 Year
  Sex: Female

DRUGS (3)
  1. AMOXICILLIN\CLAVULANATE POTASSIUM [Suspect]
     Indication: LOWER RESPIRATORY TRACT INFECTION
     Dosage: 1 DF, TID
     Route: 048
     Dates: start: 20130104, end: 20130110
  2. COLCHICINE [Suspect]
     Indication: GOUT
     Dosage: 500 UG, BID
     Route: 048
     Dates: start: 20130104, end: 20130110
  3. CLARITHROMYCIN [Suspect]
     Indication: LOWER RESPIRATORY TRACT INFECTION
     Dosage: 250 MG, BID
     Route: 048
     Dates: start: 20130108, end: 20130110

REACTIONS (3)
  - Skin reaction [Recovering/Resolving]
  - Vomiting [Recovering/Resolving]
  - Nausea [Recovering/Resolving]
